FAERS Safety Report 13354391 (Version 1)
Quarter: 2017Q1

REPORT INFORMATION
  Report Type: Spontaneous
  Country: US (occurrence: US)
  Receive Date: 20170321
  Receipt Date: 20170321
  Transmission Date: 20170429
  Serious: Yes (Other)
  Sender: FDA-Public Use
  Company Number: US-PURDUE-USA-2017-0137181

PATIENT
  Sex: Female

DRUGS (3)
  1. COLACE [Suspect]
     Active Substance: DOCUSATE SODIUM
     Indication: POST PROCEDURAL CONSTIPATION
     Dosage: 1 CAPSL, DAILY
     Route: 048
  2. COLACE [Suspect]
     Active Substance: DOCUSATE SODIUM
     Indication: CONSTIPATION
     Dosage: 3 CAPSL, DAILY
     Route: 048
     Dates: start: 20161122
  3. METFORMIN [Concomitant]
     Active Substance: METFORMIN HYDROCHLORIDE
     Indication: PRODUCT USED FOR UNKNOWN INDICATION
     Dosage: UNK
     Route: 065

REACTIONS (2)
  - Back pain [Unknown]
  - Cholelithiasis [Unknown]
